FAERS Safety Report 9176025 (Version 1)
Quarter: 2013Q1

REPORT INFORMATION
  Report Type: Spontaneous
  Country: US (occurrence: US)
  Receive Date: 20130320
  Receipt Date: 20130320
  Transmission Date: 20140127
  Serious: Yes (Hospitalization, Other)
  Sender: FDA-Public Use
  Company Number: US-MYLANLABS-2013S1005376

PATIENT
  Age: 17 Year
  Sex: Female

DRUGS (11)
  1. MYCOPHENOLATE MOFETIL [Suspect]
     Indication: IMMUNOSUPPRESSION
     Dosage: 1300 MG/M2/DAY
  2. MYCOPHENOLATE MOFETIL [Suspect]
     Indication: IMMUNOSUPPRESSION
     Dosage: 1300 MG/M2/DAY
  3. PREDNISONE [Concomitant]
  4. SIROLIMUS [Concomitant]
  5. DARBEPOETIN [Concomitant]
  6. MACRODANTIN [Concomitant]
  7. ATORVASTATIN [Concomitant]
  8. ETHINYLESTRADIOL W/LEVONORGESTREL [Concomitant]
     Indication: CONTRACEPTION
     Route: 048
  9. POLYSACCHARIDE IRON [Concomitant]
  10. RANITIDINE [Concomitant]
  11. SODIUM BICARBONATE [Concomitant]

REACTIONS (1)
  - Enterocolitis [Recovering/Resolving]
